FAERS Safety Report 9485081 (Version 1)
Quarter: 2013Q3

REPORT INFORMATION
  Report Type: Spontaneous
  Country: US (occurrence: US)
  Receive Date: 20130828
  Receipt Date: 20130828
  Transmission Date: 20140515
  Serious: No
  Sender: FDA-Public Use
  Company Number: US-ABBOTT-13P-163-1123573-00

PATIENT
  Age: 48 Year
  Sex: Male
  Weight: 65.83 kg

DRUGS (4)
  1. ANDROGEL [Suspect]
     Indication: BLOOD TESTOSTERONE DECREASED
     Dates: start: 201305
  2. PROVIGIL [Concomitant]
     Indication: SLEEP DISORDER
  3. DEXTROAMPHETAMINE [Concomitant]
     Indication: PRODUCT USED FOR UNKNOWN INDICATION
  4. DICYCLOMINE [Concomitant]
     Indication: IRRITABLE BOWEL SYNDROME

REACTIONS (1)
  - Abdominal pain [Not Recovered/Not Resolved]
